FAERS Safety Report 24822085 (Version 5)
Quarter: 2025Q2

REPORT INFORMATION
  Report Type: Spontaneous
  Country: BR (occurrence: BR)
  Receive Date: 20250108
  Receipt Date: 20250609
  Transmission Date: 20250716
  Serious: Yes (Hospitalization, Other)
  Sender: AMERICAN REGENT
  Company Number: BR-AMERICAN REGENT INC-2025000015

PATIENT
  Age: 34 Year
  Sex: Female
  Weight: 50 kg

DRUGS (5)
  1. VENOFER [Suspect]
     Active Substance: IRON SUCROSE
     Indication: Anaemia
     Route: 042
     Dates: start: 20241216, end: 20241216
  2. OGESTAN [COLECALCIFEROL;FOLIC ACID;IODINE;OMEGA-3 FATTY ACIDS;VITAMIN [Concomitant]
     Indication: Product used for unknown indication
     Route: 065
     Dates: start: 202409
  3. IRON POLYMALTOSE [Concomitant]
     Active Substance: IRON POLYMALTOSE
     Indication: Product used for unknown indication
     Route: 065
     Dates: start: 202409, end: 20250409
  4. FERROUS BISGLYCINATE [Concomitant]
     Active Substance: FERROUS BISGLYCINATE
     Indication: Product used for unknown indication
     Route: 065
     Dates: start: 202502, end: 20250311
  5. FERROUS BISGLYCINATE [Concomitant]
     Active Substance: FERROUS BISGLYCINATE
     Dates: start: 2025

REACTIONS (14)
  - Flatulence [Recovered/Resolved]
  - Joint stiffness [Recovered/Resolved]
  - Drug therapeutic incompatibility [Recovered/Resolved]
  - Product preparation issue [Recovered/Resolved]
  - Blood pressure fluctuation [Recovered/Resolved]
  - Abnormal labour affecting foetus [Recovered/Resolved]
  - Heart rate increased [Recovered/Resolved]
  - Rash macular [Recovered/Resolved]
  - Maternal exposure during pregnancy [Recovered/Resolved]
  - Peripheral swelling [Recovered/Resolved]
  - Arthralgia [Recovered/Resolved]
  - Back pain [Recovered/Resolved]
  - Paraesthesia [Recovered/Resolved]
  - Peripheral swelling [Recovered/Resolved]

NARRATIVE: CASE EVENT DATE: 20241216
